FAERS Safety Report 6721754-5 (Version None)
Quarter: 2010Q2

REPORT INFORMATION
  Report Type: 
  Country: None (occurrence: None)
  Receive Date: 20100512
  Receipt Date: 20100506
  Transmission Date: 20101027
  Serious: Yes (Other)
  Sender: FDA-Public Use
  Company Number: US-BAYER-201015110BCC

PATIENT
  Age: 69 Year
  Sex: Male
  Weight: 75 kg

DRUGS (4)
  1. ASPIRIN [Suspect]
     Indication: ISCHAEMIC HEART DISEASE PROPHYLAXIS
     Dosage: AS USED: 81 MG  UNIT DOSE: 81 MG
     Route: 048
  2. ASPIRIN [Suspect]
     Dosage: AS USED: 81 MG  UNIT DOSE: 81 MG
     Route: 048
     Dates: start: 20090101
  3. BETA BLOCKERS [Concomitant]
  4. LISINOPRIL [Concomitant]

REACTIONS (2)
  - GASTRIC HAEMORRHAGE [None]
  - HAEMOPTYSIS [None]
